FAERS Safety Report 25533320 (Version 1)
Quarter: 2025Q3

REPORT INFORMATION
  Report Type: Report from Study
  Country: EU (occurrence: EU)
  Receive Date: 20250709
  Receipt Date: 20250709
  Transmission Date: 20251021
  Serious: Yes (Hospitalization, Other)
  Sender: TAKEDA
  Company Number: EU-TAKEDA-2025TUS060765

PATIENT
  Age: 14 Year
  Sex: Female

DRUGS (29)
  1. TEDUGLUTIDE [Suspect]
     Active Substance: TEDUGLUTIDE
     Indication: Short-bowel syndrome
     Dosage: 0.8 MILLIGRAM, QD
     Dates: start: 20171001, end: 20200825
  2. TEDUGLUTIDE [Suspect]
     Active Substance: TEDUGLUTIDE
     Dosage: 0.9 MILLIGRAM, 1/WEEK
     Dates: start: 20200826, end: 20210317
  3. TEDUGLUTIDE [Suspect]
     Active Substance: TEDUGLUTIDE
     Dosage: 0.9 MILLIGRAM, QD
     Dates: start: 20210318, end: 20210528
  4. TEDUGLUTIDE [Suspect]
     Active Substance: TEDUGLUTIDE
     Dosage: 1.1 MILLIGRAM, QD
     Dates: start: 20230227, end: 20230731
  5. TEDUGLUTIDE [Suspect]
     Active Substance: TEDUGLUTIDE
     Dosage: 1.2 MILLIGRAM, QD
     Dates: start: 20230801, end: 20240305
  6. TEDUGLUTIDE [Suspect]
     Active Substance: TEDUGLUTIDE
     Dosage: 1.25 MILLIGRAM, QD
     Dates: start: 20240306, end: 202412
  7. TEDUGLUTIDE [Suspect]
     Active Substance: TEDUGLUTIDE
     Dosage: 1.5 MILLIGRAM, QD
     Dates: start: 202412
  8. CALCITRIOL [Concomitant]
     Active Substance: CALCITRIOL
     Indication: Vitamin D deficiency
     Dosage: UNK UNK, 1/WEEK
     Dates: start: 20190802
  9. CALCITRIOL [Concomitant]
     Active Substance: CALCITRIOL
     Dosage: UNK UNK, 1/WEEK
     Dates: start: 20210723
  10. Levocarnitin [Concomitant]
     Indication: Carnitine deficiency
     Dosage: 50 MILLIGRAM, 1/WEEK
     Dates: start: 20190802
  11. OMNITROPE [Concomitant]
     Active Substance: SOMATROPIN
     Indication: Failure to thrive
     Dosage: 0.45 MILLIGRAM, QD
     Dates: start: 20200728
  12. ZINC OROTATE [Concomitant]
     Active Substance: ZINC OROTATE
     Indication: Supplementation therapy
     Dosage: 37.5 MILLIGRAM, QD
     Dates: start: 20200728
  13. Vitadral [Concomitant]
     Indication: Vitamin A deficiency
     Dosage: 15 GTT DROPS, QD
     Dates: start: 20200728
  14. CREON [Concomitant]
     Active Substance: PANCRELIPASE AMYLASE\PANCRELIPASE LIPASE\PANCRELIPASE PROTEASE
     Indication: Pancreatic failure
  15. FERRLECIT [Concomitant]
     Active Substance: SODIUM FERRIC GLUCONATE COMPLEX
     Indication: Iron deficiency
     Dosage: UNK UNK, 1/WEEK
     Dates: start: 20210304
  16. FERRLECIT [Concomitant]
     Active Substance: SODIUM FERRIC GLUCONATE COMPLEX
     Dosage: 37.5 MILLIGRAM, 1/WEEK
     Dates: start: 20210723
  17. LASIX [Concomitant]
     Active Substance: FUROSEMIDE
     Indication: Prophylaxis
     Dosage: 15 MILLIGRAM, TID
     Dates: start: 20210304
  18. LENOGRASTIM [Concomitant]
     Active Substance: LENOGRASTIM
     Indication: Neutropenia
  19. Blemaren [Concomitant]
     Indication: Renal failure
     Dosage: UNK UNK, BID
     Dates: start: 20210304
  20. GRANULOCYTE COLONY-STIMULATING FACTOR NOS [Concomitant]
     Active Substance: GRANULOCYTE COLONY-STIMULATING FACTOR NOS
     Indication: Neutropenia
     Dosage: UNK UNK, QD
     Dates: start: 20210616
  21. Nefrocarnit [Concomitant]
     Indication: Carnitine deficiency
     Dosage: 50 MILLIGRAM, 1/WEEK
     Dates: start: 20210723
  22. Cotrim k ratiopharm [Concomitant]
     Indication: Pneumocystis jirovecii pneumonia
     Dosage: 720 MILLIGRAM, 1/WEEK
     Dates: start: 20210723
  23. ERYTHROPOIETIN [Concomitant]
     Active Substance: ERYTHROPOIETIN
     Indication: Anaemia
     Dosage: UNK UNK, 1/WEEK
     Dates: start: 20210828
  24. Kalinor [Concomitant]
     Indication: Hypokalaemia
     Dosage: UNK UNK, QD
     Dates: start: 20210919
  25. PANCRELIPASE [Concomitant]
     Active Substance: PANCRELIPASE
     Indication: Prophylaxis
     Dosage: UNK UNK, TID
     Dates: start: 20210919
  26. VITAMINS [Concomitant]
     Active Substance: VITAMINS
     Indication: Hypovitaminosis
     Dosage: 6 MILLILITER, QD
     Dates: start: 20211215
  27. ERGOCALCIFEROL\PHYTONADIONE\RETINOL\TOCOPHEROL [Concomitant]
     Active Substance: ERGOCALCIFEROL\PHYTONADIONE\RETINOL\TOCOPHEROL
     Indication: Hypovitaminosis
     Dosage: 6 MILLILITER, QD
     Dates: start: 20211215
  28. FUROSEMIDE [Concomitant]
     Active Substance: FUROSEMIDE
     Indication: Prophylaxis
     Dosage: 68.6 MILLIGRAM, QD
     Dates: start: 20211215
  29. ENOXAPARIN SODIUM [Concomitant]
     Active Substance: ENOXAPARIN SODIUM
     Indication: Prophylaxis
     Dosage: 80 MILLIGRAM, QD
     Dates: start: 20211215

REACTIONS (10)
  - Coagulopathy [Recovered/Resolved]
  - Systemic inflammatory response syndrome [Recovered/Resolved]
  - Pyrexia [Recovered/Resolved]
  - Pain [Recovered/Resolved]
  - Herpes simplex reactivation [Recovered/Resolved]
  - Ventricular tachycardia [Recovered/Resolved]
  - Klebsiella sepsis [Recovered/Resolved]
  - Device related bacteraemia [Recovered/Resolved]
  - Thrombocytopenia [Recovered/Resolved]
  - Nausea [Recovered/Resolved]

NARRATIVE: CASE EVENT DATE: 20250615
